FAERS Safety Report 8016808-X (Version None)
Quarter: 2012Q1

REPORT INFORMATION
  Report Type: 
  Country: None (occurrence: None)
  Receive Date: 20120102
  Receipt Date: 20111226
  Transmission Date: 20120608
  Serious: Yes (Other)
  Sender: FDA-Public Use
  Company Number: JP-BRISTOL-MYERS SQUIBB COMPANY-16241093

PATIENT
  Age: 11 Year
  Sex: Male

DRUGS (4)
  1. ABILIFY [Suspect]
     Indication: ATTENTION DEFICIT/HYPERACTIVITY DISORDER
     Dosage: INITIALLY 3 MG AND TITRATED TO 12 MG AT NIGHT
     Route: 048
  2. METHYLPHENIDATE HCL [Suspect]
     Dosage: PROLONGED RELEASED TAB
     Route: 048
  3. ATOMOXETINE HCL [Concomitant]
     Dosage: CAP
  4. ABILIFY [Suspect]
     Indication: OPPOSITIONAL DEFIANT DISORDER
     Dosage: INITIALLY 3 MG AND TITRATED TO 12 MG AT NIGHT
     Route: 048

REACTIONS (5)
  - HALLUCINATION, VISUAL [None]
  - DECREASED APPETITE [None]
  - PERSECUTORY DELUSION [None]
  - HYPERACUSIS [None]
  - DRUG EFFECT DECREASED [None]
